FAERS Safety Report 5833194-1 (Version None)
Quarter: 2008Q3

REPORT INFORMATION
  Report Type: 
  Country: None (occurrence: None)
  Receive Date: 20080805
  Receipt Date: 20080729
  Transmission Date: 20090109
  Serious: Yes (Hospitalization)
  Sender: FDA-Public Use
  Company Number: US-ELI_LILLY_AND_COMPANY-US200807005845

PATIENT
  Sex: Male

DRUGS (6)
  1. ZYPREXA [Suspect]
     Dosage: 60 MG, UNK
  2. ZOLOFT [Concomitant]
  3. RITALIN [Concomitant]
  4. KLONOPIN [Concomitant]
  5. BUSPIRONE HCL [Concomitant]
  6. DARVON [Concomitant]

REACTIONS (4)
  - DIZZINESS [None]
  - EOSINOPHILIA [None]
  - FALL [None]
  - OVERDOSE [None]
